FAERS Safety Report 19869714 (Version 1)
Quarter: 2021Q3

REPORT INFORMATION
  Report Type: Other
  Country: US (occurrence: US)
  Receive Date: 20210923
  Receipt Date: 20210923
  Transmission Date: 20211014
  Serious: Yes (Other)
  Sender: FDA-Public Use
  Company Number: US-ROCHE-2915098

PATIENT
  Sex: Female

DRUGS (14)
  1. VITAMIN D3 [Concomitant]
     Active Substance: CHOLECALCIFEROL
  2. DELTASONE [PREDNISOLONE] [Concomitant]
     Active Substance: PREDNISOLONE
  3. TYLENOL [Concomitant]
     Active Substance: ACETAMINOPHEN
  4. ROSADAN [Concomitant]
     Active Substance: METRONIDAZOLE
  5. STYE [Concomitant]
     Active Substance: MINERAL OIL\PETROLATUM
  6. COTELLIC [Suspect]
     Active Substance: COBIMETINIB
     Indication: ERDHEIM-CHESTER DISEASE
     Dosage: 2 TABLETS DAILY ON DAYS 1?21 OF EVERY 28?DAY CYCLE
     Route: 048
  7. LASIX [Concomitant]
     Active Substance: FUROSEMIDE
  8. TRANSDERM SCOP [Concomitant]
     Active Substance: SCOPOLAMINE
  9. COTELLIC [Suspect]
     Active Substance: COBIMETINIB
     Indication: METABOLIC DISORDER
  10. OMEPRAZOLE. [Concomitant]
     Active Substance: OMEPRAZOLE
  11. ZELBORAF [Concomitant]
     Active Substance: VEMURAFENIB
  12. ZESTRIL [Concomitant]
     Active Substance: LISINOPRIL
  13. MAXITROL [Concomitant]
     Active Substance: DEXAMETHASONE\NEOMYCIN SULFATE\POLYMYXIN B SULFATE
  14. ZOFRAN [Concomitant]
     Active Substance: ONDANSETRON HYDROCHLORIDE

REACTIONS (2)
  - Blindness [Unknown]
  - Off label use [Unknown]
